FAERS Safety Report 9337183 (Version 1)
Quarter: 2013Q2

REPORT INFORMATION
  Report Type: Spontaneous
  Country: IL (occurrence: IL)
  Receive Date: 20130607
  Receipt Date: 20130607
  Transmission Date: 20140414
  Serious: Yes (Other)
  Sender: FDA-Public Use
  Company Number: IL-GLAXOSMITHKLINE-B0897653A

PATIENT
  Age: 25 Year
  Sex: Female

DRUGS (4)
  1. BENLYSTA [Suspect]
     Indication: PRODUCT USED FOR UNKNOWN INDICATION
     Dosage: 600MG PER DAY
     Route: 065
     Dates: end: 20130414
  2. CHLOROQUIN [Concomitant]
  3. PREDNISONE [Concomitant]
  4. IMURAN [Concomitant]
     Dosage: 50MG PER DAY

REACTIONS (2)
  - Lupus nephritis [Unknown]
  - Proteinuria [Unknown]
